FAERS Safety Report 10775834 (Version 4)
Quarter: 2015Q3

REPORT INFORMATION
  Report Type: Spontaneous
  Country: US (occurrence: US)
  Receive Date: 20150209
  Receipt Date: 20150723
  Transmission Date: 20151125
  Serious: Yes (Congenital Anomaly, Other)
  Sender: FDA-Public Use
  Company Number: US-APOTEX-2015AP006331

PATIENT

DRUGS (1)
  1. PAXIL [Suspect]
     Active Substance: PAROXETINE HYDROCHLORIDE
     Indication: DEPRESSION
     Dosage: 20 MG, DAILY
     Route: 064
     Dates: end: 2001

REACTIONS (11)
  - Limb malformation [Unknown]
  - Hydronephrosis [Unknown]
  - Developmental hip dysplasia [Unknown]
  - Congenital bowing of long bones [Unknown]
  - Limb reduction defect [Unknown]
  - Talipes [Unknown]
  - Inguinal hernia [Unknown]
  - Kidney malrotation [Unknown]
  - Congenital knee deformity [Unknown]
  - Patellofemoral pain syndrome [Unknown]
  - Foetal exposure during pregnancy [Unknown]

NARRATIVE: CASE EVENT DATE: 200107
